FAERS Safety Report 4866325-0 (Version None)
Quarter: 2005Q4

REPORT INFORMATION
  Report Type: 
  Country: None (occurrence: None)
  Receive Date: 20051221
  Receipt Date: 20051209
  Transmission Date: 20060501
  Serious: Yes (Other)
  Sender: FDA-Public Use
  Company Number: 2005168237

PATIENT
  Age: 40 Year
  Sex: Male
  Weight: 54.4316 kg

DRUGS (6)
  1. GABAPENTIN [Suspect]
     Indication: POST HERPETIC NEURALGIA
     Dosage: 1800 MG (600 MG, 3 IN 1 D), ORAL
     Route: 048
     Dates: start: 20050401, end: 20050801
  2. LYRICA [Suspect]
     Dosage: 150 MG (50 MG, 3 IN 1 D)
     Dates: start: 20051129
  3. TYLENOL W/ CODEINE NO. 3 [Suspect]
     Indication: POST HERPETIC NEURALGIA
     Dates: start: 20050101, end: 20050801
  4. CAFFEINE (CAFFEINE) [Suspect]
     Indication: ILL-DEFINED DISORDER
  5. ADVAIR DISKUS 100/50 [Concomitant]
  6. ALBUTEROL [Concomitant]

REACTIONS (7)
  - ANXIETY [None]
  - DIARRHOEA [None]
  - DRUG DEPENDENCE [None]
  - DRUG INEFFECTIVE [None]
  - EUPHORIC MOOD [None]
  - SOMNOLENCE [None]
  - VISION BLURRED [None]
